FAERS Safety Report 7531299-0 (Version None)
Quarter: 2011Q2

REPORT INFORMATION
  Report Type: 
  Country: None (occurrence: None)
  Receive Date: 20110608
  Receipt Date: 20110530
  Transmission Date: 20111010
  Serious: Yes (Other)
  Sender: FDA-Public Use
  Company Number: IT-ASTRAZENECA-2010SE34047

PATIENT
  Age: 69 Year
  Sex: Male

DRUGS (5)
  1. CLOPIXOL [Suspect]
     Indication: MANIA
     Route: 030
     Dates: start: 20100604, end: 20100628
  2. DEPAKENE [Suspect]
     Indication: MANIA
     Route: 048
     Dates: start: 20091111, end: 20101231
  3. SEROQUEL XR [Suspect]
     Dosage: 200 MG TO 0 MG
     Route: 048
     Dates: start: 20100701, end: 20101001
  4. DEPAKENE [Suspect]
     Route: 048
     Dates: start: 20110101
  5. SEROQUEL XR [Suspect]
     Indication: MANIA
     Route: 048
     Dates: start: 20100303, end: 20100701

REACTIONS (1)
  - LEUKOPENIA [None]
